FAERS Safety Report 20182519 (Version 2)
Quarter: 2021Q4

REPORT INFORMATION
  Report Type: Spontaneous
  Country: US (occurrence: US)
  Receive Date: 20211214
  Receipt Date: 20211222
  Transmission Date: 20220303
  Serious: Yes (Other)
  Sender: FDA-Public Use
  Company Number: US-BAYER-2021A267408

PATIENT
  Age: 56 Year
  Sex: Male

DRUGS (3)
  1. JIVI [Suspect]
     Active Substance: DAMOCTOCOG ALFA PEGOL
     Dosage: 4000 IU
     Route: 042
  2. JIVI [Suspect]
     Active Substance: DAMOCTOCOG ALFA PEGOL
     Dosage: UNK, FOR PREVENTION DUE TO MODERNA COVID-19 VACCINE
     Dates: start: 20211209
  3. MODERNA COVID-19 VACCINE [Concomitant]
     Active Substance: ELASOMERAN
     Dosage: UNK
     Dates: start: 20211209

REACTIONS (4)
  - Spontaneous haemorrhage [None]
  - Malaise [None]
  - Muscle haemorrhage [None]
  - Product solubility abnormal [None]

NARRATIVE: CASE EVENT DATE: 20211206
